FAERS Safety Report 5961185-9 (Version None)
Quarter: 2008Q4

REPORT INFORMATION
  Report Type: 
  Country: None (occurrence: None)
  Receive Date: 20081119
  Receipt Date: 20081105
  Transmission Date: 20090506
  Serious: Yes (Other)
  Sender: FDA-Public Use
  Company Number: S08-FRA-01558-01

PATIENT
  Age: 60 Year
  Sex: Female
  Weight: 67 kg

DRUGS (2)
  1. ESCITALOPRAM OXALATE [Suspect]
     Indication: DEPRESSION
     Dosage: 10 MG (10 MG, ONCE A DAY), ORAL
     Route: 048
  2. ATARAX (HYDROXYZINE HYDROCHLORIDE)(HYDROXYZINE HYDROCHLORIDE) [Concomitant]

REACTIONS (1)
  - BUNDLE BRANCH BLOCK LEFT [None]
